FAERS Safety Report 23801712 (Version 3)
Quarter: 2024Q3

REPORT INFORMATION
  Report Type: Report from Study
  Country: NL (occurrence: NL)
  Receive Date: 20240501
  Receipt Date: 20240905
  Transmission Date: 20241016
  Serious: Yes (Hospitalization, Other)
  Sender: ABBVIE
  Company Number: NL-ABBVIE-5736568

PATIENT
  Age: 63 Year
  Sex: Male

DRUGS (8)
  1. CARBIDOPA\LEVODOPA [Suspect]
     Active Substance: CARBIDOPA\LEVODOPA
     Indication: Parkinson^s disease
     Dosage: MD: 8.1ML, CD: 4.6ML/H, ED: 2.40ML, ND: 0.0ML, CND: 2.4ML/H, END: 2.40ML;?REMAINS AT 24 HOURS
     Route: 050
     Dates: start: 20240425, end: 20240716
  2. CARBIDOPA\LEVODOPA [Suspect]
     Active Substance: CARBIDOPA\LEVODOPA
     Dosage: REMAINS AT 24 HOURS
     Route: 050
     Dates: start: 20200826
  3. CARBIDOPA\LEVODOPA [Suspect]
     Active Substance: CARBIDOPA\LEVODOPA
     Dosage: MD:8.1ML; CD:4.6ML/H; ED:2.40ML/H
     Route: 050
     Dates: start: 20240716
  4. LEVODOPA [Concomitant]
     Active Substance: LEVODOPA
     Indication: Parkinson^s disease
     Dosage: TIME INTERVAL: 0.125 DAYS: 2 TABLETS, 50/12.5
     Route: 048
  5. LEVODOPA [Concomitant]
     Active Substance: LEVODOPA
     Indication: Parkinson^s disease
     Dosage: TIME INTERVAL: 0.125 DAYS: 1.5 TABLET, 100/12.5
     Route: 048
  6. SYMMETREL [Concomitant]
     Active Substance: AMANTADINE HYDROCHLORIDE
     Indication: Product used for unknown indication
  7. MOVICOLON [Concomitant]
     Active Substance: POLYETHYLENE GLYCOL 3350\POTASSIUM CHLORIDE\SODIUM BICARBONATE\SODIUM CHLORIDE
     Indication: Abnormal faeces
  8. NADROPARIN CALCIUM [Concomitant]
     Active Substance: NADROPARIN CALCIUM
     Indication: Anticoagulant therapy
     Dates: start: 202404

REACTIONS (31)
  - Head injury [Not Recovered/Not Resolved]
  - Fall [Recovered/Resolved]
  - Terminal insomnia [Not Recovered/Not Resolved]
  - On and off phenomenon [Not Recovered/Not Resolved]
  - Decreased appetite [Not Recovered/Not Resolved]
  - Therapeutic product effect decreased [Not Recovered/Not Resolved]
  - Hallucination, visual [Not Recovered/Not Resolved]
  - Initial insomnia [Not Recovered/Not Resolved]
  - Fall [Recovered/Resolved]
  - Sleep disorder [Not Recovered/Not Resolved]
  - Head injury [Recovered/Resolved]
  - Speech disorder [Not Recovered/Not Resolved]
  - Muscle rigidity [Not Recovered/Not Resolved]
  - Unevaluable event [Not Recovered/Not Resolved]
  - Device dislocation [Not Recovered/Not Resolved]
  - Abnormal behaviour [Not Recovered/Not Resolved]
  - Cognitive disorder [Not Recovered/Not Resolved]
  - Asthenia [Not Recovered/Not Resolved]
  - Reduced facial expression [Not Recovered/Not Resolved]
  - Pulmonary embolism [Not Recovered/Not Resolved]
  - Face injury [Not Recovered/Not Resolved]
  - Musculoskeletal disorder [Recovered/Resolved]
  - Muscle spasms [Not Recovered/Not Resolved]
  - Memory impairment [Not Recovered/Not Resolved]
  - Off label use [Not Recovered/Not Resolved]
  - Eye haemorrhage [Not Recovered/Not Resolved]
  - Disturbance in attention [Unknown]
  - Fall [Not Recovered/Not Resolved]
  - Movement disorder [Not Recovered/Not Resolved]
  - Gait disturbance [Not Recovered/Not Resolved]
  - Fall [Unknown]

NARRATIVE: CASE EVENT DATE: 20240101
